FAERS Safety Report 25206206 (Version 1)
Quarter: 2025Q2

REPORT INFORMATION
  Report Type: Spontaneous
  Country: BE (occurrence: BE)
  Receive Date: 20250417
  Receipt Date: 20250417
  Transmission Date: 20250717
  Serious: Yes (Death)
  Sender: ROCHE
  Company Number: BE-ROCHE-10000258703

PATIENT

DRUGS (1)
  1. EVRYSDI [Suspect]
     Active Substance: RISDIPLAM
     Indication: Product used for unknown indication
     Route: 048

REACTIONS (1)
  - Euthanasia [Fatal]
